FAERS Safety Report 20029116 (Version 1)
Quarter: 2021Q4

REPORT INFORMATION
  Report Type: Spontaneous
  Country: ES (occurrence: ES)
  Receive Date: 20211103
  Receipt Date: 20211103
  Transmission Date: 20220303
  Serious: Yes (Other)
  Sender: FDA-Public Use
  Company Number: ES-LUPIN PHARMACEUTICALS INC.-2021-21297

PATIENT
  Age: 50 Year
  Sex: Female

DRUGS (20)
  1. QUETIAPINE FUMARATE [Suspect]
     Active Substance: QUETIAPINE FUMARATE
     Indication: Schizophrenia
     Dosage: 300 MILLIGRAM, QD, (0-0-1)
     Route: 065
  2. QUETIAPINE FUMARATE [Suspect]
     Active Substance: QUETIAPINE FUMARATE
     Indication: Depression
  3. BUPROPION [Suspect]
     Active Substance: BUPROPION
     Indication: Schizophrenia
     Dosage: 150 MILLIGRAM, QD, (1-0-0)
     Route: 065
  4. BUPROPION [Suspect]
     Active Substance: BUPROPION
     Indication: Depression
  5. ALPRAZOLAM [Suspect]
     Active Substance: ALPRAZOLAM
     Indication: Schizophrenia
     Dosage: 1 MILLIGRAM, TID, (1-1-1)
     Route: 065
  6. ALPRAZOLAM [Suspect]
     Active Substance: ALPRAZOLAM
     Indication: Depression
  7. CLOTHIAPINE [Suspect]
     Active Substance: CLOTHIAPINE
     Indication: Schizophrenia
     Dosage: 40 MILLIGRAM, QD, (0-0-1)
     Route: 065
  8. CLOTHIAPINE [Suspect]
     Active Substance: CLOTHIAPINE
     Indication: Depression
  9. LORMETAZEPAM [Suspect]
     Active Substance: LORMETAZEPAM
     Indication: Schizophrenia
     Dosage: 2 MILLIGRAM, QD, (0-0-1)
     Route: 065
  10. LORMETAZEPAM [Suspect]
     Active Substance: LORMETAZEPAM
     Indication: Depression
  11. REBOXETINE [Suspect]
     Active Substance: REBOXETINE
     Indication: Schizophrenia
     Dosage: 4 MILLIGRAM, BID, (1-1-0)
     Route: 065
  12. REBOXETINE [Suspect]
     Active Substance: REBOXETINE
     Indication: Depression
  13. TRAZODONE HYDROCHLORIDE [Suspect]
     Active Substance: TRAZODONE HYDROCHLORIDE
     Indication: Schizophrenia
     Dosage: 100 MILLIGRAM, QD, (0-0-1)
     Route: 065
  14. TRAZODONE HYDROCHLORIDE [Suspect]
     Active Substance: TRAZODONE HYDROCHLORIDE
     Indication: Depression
  15. BUDESONIDE\FORMOTEROL FUMARATE [Concomitant]
     Active Substance: BUDESONIDE\FORMOTEROL FUMARATE
     Indication: Emphysema
     Dosage: 160 MILLIGRAM, INHALERS
     Route: 065
  16. TIOTROPIUM BROMIDE [Concomitant]
     Active Substance: TIOTROPIUM BROMIDE
     Indication: Emphysema
     Dosage: 2.5 MILLIGRAM, QD, (0-0-1)
     Route: 065
  17. PREGABALIN [Concomitant]
     Active Substance: PREGABALIN
     Indication: Intervertebral disc protrusion
     Dosage: 150 MILLIGRAM, TID, (1-1-1)
     Route: 065
  18. FENTANYL [Concomitant]
     Active Substance: FENTANYL
     Indication: Intervertebral disc protrusion
     Dosage: 25 MICROGRAM, TID, TRANSDERMAL PATCHES, CHANGED EVERY THREE DAYS
     Route: 062
  19. ACETAMINOPHEN [Concomitant]
     Active Substance: ACETAMINOPHEN
     Indication: Intervertebral disc protrusion
     Dosage: 1 GRAM, TID, (1-1-1)
     Route: 065
  20. OMEPRAZOLE [Concomitant]
     Active Substance: OMEPRAZOLE
     Indication: Intervertebral disc protrusion
     Dosage: 20 MILLIGRAM, QD, (1-0-0)
     Route: 065

REACTIONS (2)
  - Dry mouth [Unknown]
  - Oral candidiasis [Recovered/Resolved]
